FAERS Safety Report 4761228-4 (Version None)
Quarter: 2005Q3

REPORT INFORMATION
  Report Type: 
  Country: None (occurrence: None)
  Receive Date: 20050901
  Receipt Date: 20050822
  Transmission Date: 20060218
  Serious: Yes (Hospitalization)
  Sender: FDA-Public Use
  Company Number: ST-2005-008568

PATIENT
  Age: 88 Year
  Sex: Female

DRUGS (10)
  1. OLMETEC [Suspect]
     Indication: HYPERTENSION
     Dosage: 20 MG QD PO
     Route: 048
     Dates: start: 20050719, end: 20050801
  2. GLIMICRON [Concomitant]
  3. EUGLUCON [Concomitant]
  4. NORVASC [Concomitant]
  5. GRAMALIL [Concomitant]
  6. SERENACE [Concomitant]
  7. MAGMITT [Concomitant]
  8. BENCLART [Concomitant]
  9. LAXOBERON [Concomitant]
  10. SOMELIN [Concomitant]

REACTIONS (6)
  - ABDOMINAL PAIN UPPER [None]
  - ALANINE AMINOTRANSFERASE INCREASED [None]
  - ASPARTATE AMINOTRANSFERASE INCREASED [None]
  - CHOLELITHIASIS [None]
  - HEPATIC FUNCTION ABNORMAL [None]
  - PYREXIA [None]
